FAERS Safety Report 17827178 (Version 1)
Quarter: 2020Q2

REPORT INFORMATION
  Report Type: Spontaneous
  Country: CA (occurrence: CA)
  Receive Date: 20200527
  Receipt Date: 20200527
  Transmission Date: 20200714
  Serious: Yes (Hospitalization, Other)
  Sender: FDA-Public Use
  Company Number: CA-SA-2020SA132106

PATIENT
  Age: 78 Year
  Sex: Male

DRUGS (25)
  1. CALCIUM GLUCONATE. [Suspect]
     Active Substance: CALCIUM GLUCONATE
  2. CALCIUM FOLINATE [Suspect]
     Active Substance: LEUCOVORIN CALCIUM
     Dosage: 5 MG, BIW
  3. PARA-AMINOSALICYLIC ACID [Suspect]
     Active Substance: AMINOSALICYLIC ACID
  4. IRON (SALT NOT SPECIFIED) [Suspect]
     Active Substance: IRON
  5. PANTOPRAZOLE [Suspect]
     Active Substance: PANTOPRAZOLE
  6. SILDENAFIL CITRATE. [Suspect]
     Active Substance: SILDENAFIL CITRATE
     Dosage: 100 MG
  7. METHOTREXATE. [Suspect]
     Active Substance: METHOTREXATE
     Dosage: 17.5 MG, QW
     Route: 042
  8. METHOTREXATE. [Suspect]
     Active Substance: METHOTREXATE
     Dosage: 15 MG, QW
     Route: 042
  9. METHOTREXATE. [Suspect]
     Active Substance: METHOTREXATE
     Dosage: 20 MG, QW
     Route: 042
  10. HUMIRA [Suspect]
     Active Substance: ADALIMUMAB
     Route: 058
  11. METHOTREXATE. [Suspect]
     Active Substance: METHOTREXATE
     Dosage: 1 EVERY 1 WEEK
     Route: 042
  12. METHOTREXATE. [Suspect]
     Active Substance: METHOTREXATE
     Dosage: 1 EVERY 1 WEEK
     Route: 042
  13. METHOTREXATE. [Suspect]
     Active Substance: METHOTREXATE
     Dosage: 25 MG, QW
     Route: 042
  14. PREDNISONE. [Suspect]
     Active Substance: PREDNISONE
     Dosage: UNK
  15. VITAMIN D3 [Suspect]
     Active Substance: CHOLECALCIFEROL
     Dosage: 10000 DF, QW
  16. RIFAMPICIN [Suspect]
     Active Substance: RIFAMPIN
  17. BISOPROLOL SALT NOT SPECIFIED [Suspect]
     Active Substance: BISOPROLOL
  18. MESALAZINE [Suspect]
     Active Substance: MESALAMINE
     Dosage: 1200 MG, QD
  19. PREDNISONE. [Suspect]
     Active Substance: PREDNISONE
     Dosage: UNK
  20. ISONIAZID. [Suspect]
     Active Substance: ISONIAZID
  21. ESOMEPRAZOLE MAGNESIUM. [Suspect]
     Active Substance: ESOMEPRAZOLE MAGNESIUM
     Dosage: 40 MG, QD
  22. IBUPROFEN. [Suspect]
     Active Substance: IBUPROFEN
  23. METHOTREXATE. [Suspect]
     Active Substance: METHOTREXATE
     Route: 042
  24. METHOTREXATE. [Suspect]
     Active Substance: METHOTREXATE
     Dosage: 1 EVERY 1 WEEK
     Route: 042
  25. VITAMIN B1 [Suspect]
     Active Substance: THIAMINE HYDROCHLORIDE
     Dosage: 100 MG, QD

REACTIONS (8)
  - Drug hypersensitivity [Recovered/Resolved]
  - Colitis ulcerative [Recovered/Resolved]
  - Osteoporosis [Recovered/Resolved]
  - Hospitalisation [Recovered/Resolved]
  - Diabetes mellitus [Recovered/Resolved]
  - Dyslipidaemia [Recovered/Resolved]
  - Drug ineffective [Unknown]
  - Drug intolerance [Recovered/Resolved]
